FAERS Safety Report 7166598-8 (Version None)
Quarter: 2010Q4

REPORT INFORMATION
  Report Type: 
  Country: None (occurrence: None)
  Receive Date: 20101216
  Receipt Date: 20101210
  Transmission Date: 20110411
  Serious: No
  Sender: FDA-Public Use
  Company Number: TR-SANOFI-AVENTIS-2010SA074745

PATIENT
  Age: 26 Year
  Sex: Female
  Weight: 62 kg

DRUGS (3)
  1. ARAVA [Suspect]
     Route: 048
     Dates: start: 20100215, end: 20100401
  2. INFLIXIMAB [Suspect]
     Dosage: EVERY 2 MONTHS
     Route: 042
     Dates: start: 20100420
  3. ISONIAZID [Suspect]
     Route: 048
     Dates: start: 20100401, end: 20100915

REACTIONS (1)
  - DRUG EXPOSURE DURING PREGNANCY [None]
